FAERS Safety Report 5908715-0 (Version None)
Quarter: 2008Q4

REPORT INFORMATION
  Report Type: 
  Country: None (occurrence: None)
  Receive Date: 20081006
  Receipt Date: 20081002
  Transmission Date: 20090506
  Serious: Yes (Death, Hospitalization)
  Sender: FDA-Public Use
  Company Number: A0750537A

PATIENT
  Age: 80 Year
  Sex: Female

DRUGS (3)
  1. SERETIDE [Suspect]
     Indication: ASTHMA
     Route: 055
  2. RESPIRATORY SUPPORT [Concomitant]
  3. AMINOPHYLLINE [Concomitant]
     Dates: start: 20080721

REACTIONS (2)
  - DEATH [None]
  - PNEUMONIA [None]
